FAERS Safety Report 21723894 (Version 1)
Quarter: 2022Q4

REPORT INFORMATION
  Report Type: Spontaneous
  Country: US (occurrence: None)
  Receive Date: 20221213
  Receipt Date: 20221213
  Transmission Date: 20230113
  Serious: Yes (Other)
  Sender: FDA-Public Use
  Company Number: None

PATIENT

DRUGS (2)
  1. ALCOHOL [Suspect]
     Active Substance: ALCOHOL
  2. PDI SANI-HANDS INSTANT HAND SANITIZING WIPES [Suspect]
     Active Substance: ALCOHOL
     Dosage: OTHER STRENGTH : 70% ETHYL ALCOHOL;?

REACTIONS (2)
  - Product packaging confusion [None]
  - Circumstance or information capable of leading to device use error [None]

NARRATIVE: CASE EVENT DATE: 20221212
